FAERS Safety Report 22370735 (Version 1)
Quarter: 2023Q2

REPORT INFORMATION
  Report Type: Spontaneous
  Country: DE (occurrence: DE)
  Receive Date: 20230526
  Receipt Date: 20230526
  Transmission Date: 20230722
  Serious: Yes (Other)
  Sender: FDA-Public Use
  Company Number: DE-HETERO-HET2023DE00541

PATIENT
  Age: 3 Year
  Sex: Male

DRUGS (9)
  1. LEVETIRACETAM [Suspect]
     Active Substance: LEVETIRACETAM
     Indication: Epilepsy with myoclonic-atonic seizures
     Dosage: UNK
     Route: 065
  2. ETHOSUXIMIDE [Suspect]
     Active Substance: ETHOSUXIMIDE
     Indication: Epilepsy with myoclonic-atonic seizures
     Dosage: UNK
     Route: 065
  3. METHYLPREDNISOLONE [Suspect]
     Active Substance: METHYLPREDNISOLONE
     Indication: Product used for unknown indication
     Dosage: UNK
     Route: 065
  4. VALPROATE [Suspect]
     Active Substance: VALPROIC ACID
     Indication: Epilepsy with myoclonic-atonic seizures
     Dosage: UNK
     Route: 065
  5. CLOBAZAM [Suspect]
     Active Substance: CLOBAZAM
     Indication: Epilepsy with myoclonic-atonic seizures
     Dosage: UNK
     Route: 065
  6. CLONAZEPAM [Suspect]
     Active Substance: CLONAZEPAM
     Indication: Epilepsy with myoclonic-atonic seizures
     Dosage: UNK
     Route: 065
  7. PRIMIDONE [Suspect]
     Active Substance: PRIMIDONE
     Indication: Epilepsy with myoclonic-atonic seizures
     Dosage: UNK
     Route: 065
  8. ZONEGRAN [Suspect]
     Active Substance: ZONISAMIDE
     Indication: Epilepsy with myoclonic-atonic seizures
     Dosage: UNK
     Route: 048
     Dates: start: 2013, end: 2013
  9. LAMOTRIGINE [Suspect]
     Active Substance: LAMOTRIGINE
     Indication: Epilepsy with myoclonic-atonic seizures
     Dosage: UNK
     Route: 065

REACTIONS (7)
  - Altered state of consciousness [Unknown]
  - Developmental delay [Unknown]
  - Status epilepticus [Unknown]
  - Somnolence [Unknown]
  - Encephalopathy [Unknown]
  - Fatigue [Unknown]
  - Ataxia [Unknown]

NARRATIVE: CASE EVENT DATE: 20130101
